FAERS Safety Report 24747983 (Version 1)
Quarter: 2024Q4

REPORT INFORMATION
  Report Type: Spontaneous
  Country: NL (occurrence: NL)
  Receive Date: 20241218
  Receipt Date: 20241218
  Transmission Date: 20250115
  Serious: Yes (Death, Life-Threatening, Hospitalization, Other)
  Sender: RANBAXY
  Company Number: NL-SUN PHARMACEUTICAL INDUSTRIES LTD-2024R1-485077

PATIENT
  Age: 55 Year
  Sex: Male

DRUGS (3)
  1. CAPECITABINE [Suspect]
     Active Substance: CAPECITABINE
     Indication: Testis cancer
     Dosage: 500 MILLIGRAM/SQ. METER, BID
     Route: 065
  2. OXALIPLATIN [Concomitant]
     Active Substance: OXALIPLATIN
     Indication: Testis cancer
     Dosage: UNK
     Route: 065
  3. TRASTUZUMAB [Concomitant]
     Active Substance: TRASTUZUMAB
     Indication: Testis cancer
     Dosage: UNK
     Route: 065

REACTIONS (10)
  - Toxicity to various agents [Fatal]
  - Leukoencephalopathy [Fatal]
  - Mucosal inflammation [Fatal]
  - Abdominal pain [Fatal]
  - Pancytopenia [Fatal]
  - Platelet count decreased [Fatal]
  - Anaemia [Fatal]
  - Cognitive disorder [Fatal]
  - Altered state of consciousness [Fatal]
  - Death [Fatal]
